FAERS Safety Report 5827422-6 (Version None)
Quarter: 2008Q3

REPORT INFORMATION
  Report Type: 
  Country: None (occurrence: None)
  Receive Date: 20080725
  Receipt Date: 20080710
  Transmission Date: 20090109
  Serious: Yes (Death, Hospitalization)
  Sender: FDA-Public Use
  Company Number: 2008BI014193

PATIENT
  Sex: Female

DRUGS (1)
  1. TYSABRI [Suspect]
     Indication: PROGRESSIVE RELAPSING MULTIPLE SCLEROSIS
     Dosage: 300 MG; QM; IV
     Route: 042
     Dates: start: 20071201, end: 20080401

REACTIONS (19)
  - BALANCE DISORDER [None]
  - BLOOD BRAIN BARRIER DEFECT [None]
  - CEREBRAL TOXOPLASMOSIS [None]
  - COGNITIVE DISORDER [None]
  - COMA [None]
  - DISEASE PROGRESSION [None]
  - DYSPNOEA [None]
  - FALL [None]
  - FATIGUE [None]
  - FREEZING PHENOMENON [None]
  - HYPERTONIA [None]
  - INFUSION RELATED REACTION [None]
  - LEUKOPENIA [None]
  - LOSS OF CONSCIOUSNESS [None]
  - MALAISE [None]
  - MULTIPLE SCLEROSIS RELAPSE [None]
  - NEURITIS [None]
  - QUADRIPARESIS [None]
  - SPEECH DISORDER [None]
